FAERS Safety Report 10703992 (Version 5)
Quarter: 2015Q1

REPORT INFORMATION
  Report Type: Spontaneous
  Country: US (occurrence: US)
  Receive Date: 20150112
  Receipt Date: 20150212
  Transmission Date: 20150721
  Serious: Yes (Other)
  Sender: FDA-Public Use
  Company Number: US-PFIZER INC-2015011057

PATIENT
  Age: 48 Year
  Sex: Male

DRUGS (2)
  1. LYRICA [Suspect]
     Active Substance: PREGABALIN
     Indication: OPEN REDUCTION OF FRACTURE
  2. LYRICA [Suspect]
     Active Substance: PREGABALIN
     Indication: FOOT FRACTURE
     Dosage: 50 MG, 2X/DAY
     Route: 048
     Dates: start: 20120825

REACTIONS (12)
  - Road traffic accident [Unknown]
  - Joint range of motion decreased [Unknown]
  - Product use issue [Unknown]
  - Pain [Unknown]
  - Sensory loss [Unknown]
  - Gait disturbance [Unknown]
  - Limb discomfort [Unknown]
  - Muscular weakness [Unknown]
  - Depression [Unknown]
  - Sleep disorder [Unknown]
  - Anxiety [Unknown]
  - Limb crushing injury [Unknown]

NARRATIVE: CASE EVENT DATE: 20120825
